FAERS Safety Report 4934291-5 (Version None)
Quarter: 2006Q1

REPORT INFORMATION
  Report Type: 
  Country: None (occurrence: None)
  Receive Date: 20060302
  Receipt Date: 20060223
  Transmission Date: 20060701
  Serious: Yes (Hospitalization)
  Sender: FDA-Public Use
  Company Number: WAES 0602USA05685

PATIENT
  Age: 55 Year
  Sex: Female
  Weight: 65.7716 kg

DRUGS (3)
  1. DECADRON [Suspect]
     Dosage: PO
     Route: 048
  2. CAP VORINOSTAT [Suspect]
     Indication: PAPILLARY THYROID CANCER
     Dosage: SEE IMAGE, PO
     Route: 048
     Dates: start: 20060106, end: 20060207
  3. CAP VORINOSTAT [Suspect]
     Indication: PAPILLARY THYROID CANCER
     Dosage: SEE IMAGE, PO
     Route: 048
     Dates: start: 20051216

REACTIONS (8)
  - ASTHENIA [None]
  - CONFUSIONAL STATE [None]
  - DEHYDRATION [None]
  - HAEMOGLOBIN DECREASED [None]
  - HYPOCALCAEMIA [None]
  - PERIPHERAL MOTOR NEUROPATHY [None]
  - PLATELET COUNT DECREASED [None]
  - PNEUMONIA [None]
